FAERS Safety Report 25929462 (Version 1)
Quarter: 2025Q4

REPORT INFORMATION
  Report Type: Report from Study
  Country: US (occurrence: US)
  Receive Date: 20251016
  Receipt Date: 20251016
  Transmission Date: 20260118
  Serious: Yes (Other)
  Sender: ALEXION PHARMACEUTICALS
  Company Number: US-ASTRAZENECA-202510NAM011164US

PATIENT
  Age: 69 Year
  Sex: Female

DRUGS (2)
  1. STRENSIQ [Suspect]
     Active Substance: ASFOTASE ALFA
     Indication: Phosphorus metabolism disorder
     Dosage: 1 MILLIGRAM/KILOGRAM, TIW, ROTATE INJECTION SITES
     Route: 065
  2. STRENSIQ [Suspect]
     Active Substance: ASFOTASE ALFA
     Dosage: 1 MILLIGRAM/KILOGRAM, TIW, ROTATE INJECTION SITES
     Route: 065

REACTIONS (6)
  - Parathyroid tumour benign [Unknown]
  - Monoclonal immunoglobulin [Unknown]
  - Arthralgia [Unknown]
  - Tendon injury [Unknown]
  - Bone pain [Unknown]
  - Fatigue [Unknown]
